FAERS Safety Report 15810782 (Version 1)
Quarter: 2019Q1

REPORT INFORMATION
  Report Type: Spontaneous
  Country: GB (occurrence: GB)
  Receive Date: 20190111
  Receipt Date: 20190111
  Transmission Date: 20190417
  Serious: Yes (Other)
  Sender: FDA-Public Use
  Company Number: GB-TEVA-2019-GB-997125

PATIENT
  Age: 56 Year
  Sex: Male
  Weight: 122 kg

DRUGS (15)
  1. DAPAGLIFLOZIN. [Concomitant]
     Active Substance: DAPAGLIFLOZIN
  2. METFORMIN [Concomitant]
     Active Substance: METFORMIN HYDROCHLORIDE
  3. DESMOPRESSIN [Concomitant]
     Active Substance: DESMOPRESSIN
  4. PROPRANOLOL [Suspect]
     Active Substance: PROPRANOLOL HYDROCHLORIDE
     Indication: ANXIETY
     Dosage: 30 MILLIGRAM DAILY;
     Route: 048
     Dates: start: 2012
  5. ZOPICLONE [Concomitant]
     Active Substance: ZOPICLONE
  6. DIAZEPAM. [Concomitant]
     Active Substance: DIAZEPAM
  7. DIHYDROCODEINE [Concomitant]
     Active Substance: DIHYDROCODEINE
  8. BETAHISTINE DIHYDROCHLORIDE [Concomitant]
     Active Substance: BETAHISTINE
  9. OMEPRAZOLE. [Concomitant]
     Active Substance: OMEPRAZOLE
  10. TRAMADOL. [Concomitant]
     Active Substance: TRAMADOL
  11. EPILIM [Concomitant]
     Active Substance: VALPROATE SODIUM
  12. PAROXETINE. [Concomitant]
     Active Substance: PAROXETINE
  13. AMITRIPTYLINE [Concomitant]
     Active Substance: AMITRIPTYLINE
  14. PIZOTIFEN [Concomitant]
     Active Substance: PIZOTYLINE
  15. DOMPERIDONE [Concomitant]
     Active Substance: DOMPERIDONE

REACTIONS (1)
  - Dysgeusia [Not Recovered/Not Resolved]
